FAERS Safety Report 15465671 (Version 1)
Quarter: 2018Q4

REPORT INFORMATION
  Report Type: Spontaneous
  Country: US (occurrence: US)
  Receive Date: 20181004
  Receipt Date: 20181004
  Transmission Date: 20190204
  Serious: Yes (Other)
  Sender: FDA-Public Use
  Company Number: US-SHIRE-US201837228

PATIENT
  Age: 35 Year
  Sex: Female
  Weight: 111.11 kg

DRUGS (2)
  1. PROTONIX [Concomitant]
     Active Substance: PANTOPRAZOLE SODIUM
     Indication: PRODUCT USED FOR UNKNOWN INDICATION
  2. PENTASA [Suspect]
     Active Substance: MESALAMINE
     Indication: SMALL INTESTINE ULCER
     Dosage: 500 MG, 4X/DAY:QID
     Route: 048
     Dates: start: 20180906, end: 20180920

REACTIONS (3)
  - Kidney infection [Recovered/Resolved]
  - Cystitis [Recovered/Resolved]
  - Dehydration [Recovered/Resolved]

NARRATIVE: CASE EVENT DATE: 201809
